FAERS Safety Report 24461174 (Version 1)
Quarter: 2024Q4

REPORT INFORMATION
  Report Type: Spontaneous
  Country: US (occurrence: US)
  Receive Date: 20241018
  Receipt Date: 20241018
  Transmission Date: 20250115
  Serious: Yes (Other)
  Sender: AUROBINDO
  Company Number: US-AUROBINDO-AUR-APL-2024-051007

PATIENT
  Age: 48 Year
  Sex: Male

DRUGS (1)
  1. PHENYTOIN [Suspect]
     Active Substance: PHENYTOIN
     Indication: Neuropathy peripheral
     Dosage: UNK
     Route: 065

REACTIONS (2)
  - Cholestatic liver injury [Unknown]
  - Rash [Unknown]
